FAERS Safety Report 17632184 (Version 4)
Quarter: 2020Q2

REPORT INFORMATION
  Report Type: Report from Study
  Country: CA (occurrence: CA)
  Receive Date: 20200406
  Receipt Date: 20200513
  Transmission Date: 20200713
  Serious: Yes (Other)
  Sender: FDA-Public Use
  Company Number: CA-UCBSA-2020012104

PATIENT
  Age: 36 Year
  Sex: Female

DRUGS (3)
  1. CERTOLIZUMAB PEGOL PSA [Suspect]
     Active Substance: CERTOLIZUMAB PEGOL
     Indication: PSORIATIC ARTHROPATHY
     Dosage: 400 MILLIGRAM, EV 2 WEEKS(QOW)
     Route: 058
     Dates: start: 20200312
  2. PLAQUENIL [Concomitant]
     Active Substance: HYDROXYCHLOROQUINE SULFATE
     Indication: PRODUCT USED FOR UNKNOWN INDICATION
     Dosage: UNK
  3. CERTOLIZUMAB PEGOL PSA [Suspect]
     Active Substance: CERTOLIZUMAB PEGOL
     Dosage: 400 MILLIGRAM, EV 2 WEEKS(QOW)
     Route: 058
     Dates: start: 20200312, end: 2020

REACTIONS (4)
  - Psoriasis [Recovering/Resolving]
  - Dermatitis allergic [Recovering/Resolving]
  - Rash [Not Recovered/Not Resolved]
  - Maternal exposure during breast feeding [Unknown]

NARRATIVE: CASE EVENT DATE: 20200314
